FAERS Safety Report 8354940-1 (Version None)
Quarter: 2012Q2

REPORT INFORMATION
  Report Type: 
  Country: None (occurrence: None)
  Receive Date: 20120511
  Receipt Date: 20120411
  Transmission Date: 20120825
  Serious: Yes (Other)
  Sender: FDA-Public Use
  Company Number: JP-PFIZER INC-2012072107

PATIENT
  Age: 71 Year
  Sex: Female

DRUGS (3)
  1. ADALAT CC [Concomitant]
     Dosage: UNK
  2. DIOVAN [Concomitant]
     Dosage: UNK
     Route: 048
  3. LIPITOR [Suspect]
     Dosage: 5 MG DAILY
     Route: 048
     Dates: start: 20120106

REACTIONS (1)
  - HAEMORRHAGE SUBCUTANEOUS [None]
